FAERS Safety Report 5661197-9 (Version None)
Quarter: 2008Q1

REPORT INFORMATION
  Report Type: 
  Country: None (occurrence: None)
  Receive Date: 20080311
  Receipt Date: 20080228
  Transmission Date: 20080703
  Serious: Yes (Other)
  Sender: FDA-Public Use
  Company Number: DE-GILEAD-2008-0015219

PATIENT
  Age: 43 Year
  Sex: Male
  Weight: 66 kg

DRUGS (2)
  1. TRUVADA [Suspect]
     Dates: start: 20060126
  2. KALETRA [Concomitant]
     Dates: start: 20060126

REACTIONS (1)
  - HYPOKALAEMIA [None]
